FAERS Safety Report 8722563 (Version 3)
Quarter: 2013Q1

REPORT INFORMATION
  Report Type: Spontaneous
  Country: FR (occurrence: FR)
  Receive Date: 20120814
  Receipt Date: 20130122
  Transmission Date: 20140127
  Serious: Yes (Hospitalization)
  Sender: FDA-Public Use
  Company Number: FR-ROCHE-1100989

PATIENT
  Age: 64 Year
  Sex: Female

DRUGS (5)
  1. MABTHERA [Suspect]
     Indication: B-CELL LYMPHOMA
     Route: 042
     Dates: start: 20110526
  2. MABTHERA [Suspect]
     Route: 042
     Dates: start: 20111026
  3. CYCLOPHOSPHAMIDE [Suspect]
     Indication: B-CELL LYMPHOMA
     Route: 065
     Dates: start: 20110526
  4. ADRIBLASTINE [Suspect]
     Indication: B-CELL LYMPHOMA
     Route: 065
     Dates: start: 20110526
  5. ONCOVIN [Suspect]
     Indication: B-CELL LYMPHOMA
     Route: 065
     Dates: start: 20110526

REACTIONS (1)
  - Malignant melanoma [Not Recovered/Not Resolved]
